FAERS Safety Report 18382002 (Version 1)
Quarter: 2020Q4

REPORT INFORMATION
  Report Type: Spontaneous
  Country: US (occurrence: US)
  Receive Date: 20201013
  Receipt Date: 20201013
  Transmission Date: 20210114
  Serious: No
  Sender: FDA-Public Use
  Company Number: None

PATIENT
  Age: 62 Year
  Sex: Male
  Weight: 91 kg

DRUGS (2)
  1. DAUNORUBICIN [Suspect]
     Active Substance: DAUNORUBICIN
     Dates: end: 20200817
  2. CYTARABINE (63878) [Suspect]
     Active Substance: CYTARABINE
     Dates: end: 20200821

REACTIONS (2)
  - Staphylococcal infection [None]
  - Lung opacity [None]

NARRATIVE: CASE EVENT DATE: 20200827
